FAERS Safety Report 11140834 (Version 1)
Quarter: 2015Q2

REPORT INFORMATION
  Report Type: Spontaneous
  Country: US (occurrence: None)
  Receive Date: 20150526
  Receipt Date: 20150526
  Transmission Date: 20150821
  Serious: No
  Sender: FDA-Public Use
  Company Number: None

PATIENT
  Age: 44 Year
  Sex: Female
  Weight: 49.9 kg

DRUGS (13)
  1. VIIBRYD [Concomitant]
     Active Substance: VILAZODONE HYDROCHLORIDE
  2. CYBERONICS [Concomitant]
  3. VITAMIN B12 [Concomitant]
     Active Substance: CYANOCOBALAMIN
  4. ABILIFY [Concomitant]
     Active Substance: ARIPIPRAZOLE
  5. PROVIGIL [Concomitant]
     Active Substance: MODAFINIL
  6. VISINE A [Concomitant]
     Active Substance: NAPHAZOLINE HYDROCHLORIDE\PHENIRAMINE MALEATE
  7. ASPIRIN. [Concomitant]
     Active Substance: ASPIRIN
  8. KLONOPIN [Concomitant]
     Active Substance: CLONAZEPAM
  9. FLINTSTONES VITAMINS [Concomitant]
  10. IMURAN [Concomitant]
     Active Substance: AZATHIOPRINE
  11. CLARITIN [Concomitant]
     Active Substance: LORATADINE
  12. PREDNISONE. [Suspect]
     Active Substance: PREDNISONE
     Indication: AUTOIMMUNE HEPATITIS
     Dosage: TAKEN BY MOUTH
  13. VITAMIN D [Concomitant]
     Active Substance: CHOLECALCIFEROL

REACTIONS (4)
  - Inflammation [None]
  - Gastritis [None]
  - Weight increased [None]
  - Joint swelling [None]

NARRATIVE: CASE EVENT DATE: 20150501
